FAERS Safety Report 21553161 (Version 1)
Quarter: 2022Q4

REPORT INFORMATION
  Report Type: Spontaneous
  Country: KR (occurrence: KR)
  Receive Date: 20221104
  Receipt Date: 20221104
  Transmission Date: 20230113
  Serious: Yes (Other)
  Sender: FDA-Public Use
  Company Number: KR-MYLANLABS-2022M1118861

PATIENT
  Sex: Female

DRUGS (3)
  1. LYRICA [Suspect]
     Active Substance: PREGABALIN
     Indication: Septic shock
     Dosage: 75 MILLIGRAM, QD
     Route: 065
     Dates: start: 20210609, end: 20210618
  2. TRAMADOL HYDROCHLORIDE [Suspect]
     Active Substance: TRAMADOL HYDROCHLORIDE
     Indication: Septic shock
     Dosage: 50 MILLIGRAM, QD
     Route: 065
     Dates: start: 20210530, end: 20210604
  3. .ALPHA.-LIPOIC ACID [Suspect]
     Active Substance: .ALPHA.-LIPOIC ACID
     Indication: Septic shock
     Dosage: 600 MILLIGRAM, QD
     Route: 065
     Dates: start: 20210531, end: 20210617

REACTIONS (2)
  - Hypotension [Recovered/Resolved]
  - Off label use [Unknown]

NARRATIVE: CASE EVENT DATE: 20210602
